FAERS Safety Report 9220927 (Version 2)
Quarter: 2013Q2

REPORT INFORMATION
  Report Type: Spontaneous
  Country: DE (occurrence: DE)
  Receive Date: 20130409
  Receipt Date: 20130614
  Transmission Date: 20140414
  Serious: Yes (Hospitalization, Other)
  Sender: FDA-Public Use
  Company Number: DE-ELI_LILLY_AND_COMPANY-DE201303009802

PATIENT
  Sex: Male

DRUGS (13)
  1. FORSTEO [Suspect]
     Indication: OSTEOPOROSIS
     Dosage: UNK, QD
     Route: 058
     Dates: start: 20130221
  2. ASS [Concomitant]
     Dosage: UNK, UNKNOWN
     Route: 048
  3. PANTOPRAZOL [Concomitant]
     Dosage: UNK, UNKNOWN
     Route: 048
  4. ARCOXIA [Concomitant]
     Dosage: 60 MG, QD
     Route: 048
  5. RAMIPRIL [Concomitant]
     Dosage: 2.5 MG, QD
     Route: 048
  6. SPASMEX [Concomitant]
     Dosage: 15 MG, QD
  7. SIMVASTATIN [Concomitant]
  8. GLIMEPIRIDE [Concomitant]
     Dosage: 2 MG, UNK
  9. NOVAMINSULFON [Concomitant]
     Dosage: 500 MG, QD
  10. RANEXA [Concomitant]
     Dosage: 500 MG, BID
  11. BISOPROLOL [Concomitant]
     Dosage: 5 MG, BID
  12. TORASEMIDE [Concomitant]
     Dosage: 5 MG, QD
  13. BRILIQUE [Concomitant]
     Dosage: 90 MG, QD

REACTIONS (9)
  - Myocardial infarction [Recovering/Resolving]
  - Diverticulum intestinal [Unknown]
  - Melaena [Unknown]
  - Coronary artery stenosis [Unknown]
  - Coronary artery disease [Unknown]
  - Asthenia [Unknown]
  - Hypertension [Unknown]
  - Hyperlipidaemia [Unknown]
  - Type 2 diabetes mellitus [Unknown]
